FAERS Safety Report 15082671 (Version 3)
Quarter: 2018Q3

REPORT INFORMATION
  Report Type: Spontaneous
  Country: JP (occurrence: JP)
  Receive Date: 20180628
  Receipt Date: 20180706
  Transmission Date: 20181010
  Serious: Yes (Other)
  Sender: FDA-Public Use
  Company Number: JP-PFIZER INC-2018259145

PATIENT
  Age: 50 Year
  Sex: Male
  Weight: 68.3 kg

DRUGS (24)
  1. TACROLIMUS. [Interacting]
     Active Substance: TACROLIMUS
     Dosage: 0.040 MG/KG/DAY
  2. TACROLIMUS. [Interacting]
     Active Substance: TACROLIMUS
     Dosage: 0.029 MG/KG/DAY
  3. TACROLIMUS. [Interacting]
     Active Substance: TACROLIMUS
     Indication: IMMUNOSUPPRESSANT DRUG THERAPY
     Dosage: 3.4 MG, 1X/DAY
  4. TACROLIMUS. [Interacting]
     Active Substance: TACROLIMUS
     Dosage: 1 MG, 1X/DAY (BEFORE FLUCONAZOLE WITHDRAWAL)
  5. TACROLIMUS. [Interacting]
     Active Substance: TACROLIMUS
     Dosage: 3 MG, 1X/DAY (AFTER 34 DAYS FLUCONAZOLE WITHDRAWAL)
  6. TACROLIMUS. [Interacting]
     Active Substance: TACROLIMUS
     Dosage: 2.9 TIMES INCREASED
  7. PREDNISOLONE. [Concomitant]
     Active Substance: PREDNISOLONE
     Indication: IMMUNOSUPPRESSANT DRUG THERAPY
     Dosage: UNK
  8. EVEROLIMUS. [Interacting]
     Active Substance: EVEROLIMUS
     Dosage: 1.5 MG, DAILY (AFTER 11 DAYS FLUCONAZOLE WITHDRAWAL)
  9. EVEROLIMUS. [Interacting]
     Active Substance: EVEROLIMUS
     Dosage: 3.3 TIMES INCREASED
  10. FLUCONAZOLE. [Suspect]
     Active Substance: FLUCONAZOLE
     Indication: SPONDYLITIS
     Dosage: 400 MG, 1X/DAY
     Route: 042
  11. TACROLIMUS. [Interacting]
     Active Substance: TACROLIMUS
     Dosage: 1.8 MG, 1X/DAY
  12. TACROLIMUS. [Interacting]
     Active Substance: TACROLIMUS
     Dosage: 0.014 MG/KG/DAY
  13. EVEROLIMUS. [Interacting]
     Active Substance: EVEROLIMUS
     Indication: INFECTIVE SPONDYLITIS
     Dosage: 0.5 MG, 1X/DAY (BEFORE FLUCONAZOLE WITHDRAWAL)
  14. EVEROLIMUS. [Interacting]
     Active Substance: EVEROLIMUS
     Dosage: 0.007 MG/KG/DAY
  15. MYCOPHENOLATE MOFETIL. [Concomitant]
     Active Substance: MYCOPHENOLATE MOFETIL
     Indication: IMMUNOSUPPRESSANT DRUG THERAPY
     Dosage: UNK
  16. TACROLIMUS. [Interacting]
     Active Substance: TACROLIMUS
     Dosage: 3.0 TIMES INCREASED (BEFORE VS. AFTER 34 DAYS)
  17. EVEROLIMUS. [Interacting]
     Active Substance: EVEROLIMUS
     Dosage: 1.75 MG, DAILY (AFTER 34 DAYS FLUCONAZOLE WITHDRAWAL)
  18. EVEROLIMUS. [Interacting]
     Active Substance: EVEROLIMUS
     Dosage: 0.020 MG/KG/DAY
  19. FLUCONAZOLE. [Interacting]
     Active Substance: FLUCONAZOLE
     Indication: CANDIDA INFECTION
  20. FLUCONAZOLE. [Interacting]
     Active Substance: FLUCONAZOLE
     Indication: CANDIDA INFECTION
     Dosage: 300 MG, 1X/DAY
     Route: 048
  21. EVEROLIMUS. [Interacting]
     Active Substance: EVEROLIMUS
     Dosage: 0.023 MG/KG/DAY
  22. FLUCONAZOLE. [Interacting]
     Active Substance: FLUCONAZOLE
     Indication: INFECTIVE SPONDYLITIS
     Dosage: UNK (AT 54 DAYS AFTER FLUCONAZOLE INITIATION, IV ADMINISTRATION OF FLUCONAZOLE SWITCHED TO ORAL)
     Route: 048
  23. TACROLIMUS. [Interacting]
     Active Substance: TACROLIMUS
     Dosage: 1.4 MG, 1X/DAY (TACROLIMUS DOSAGE WAS DECREASED BY EQUIVALENT TO 60%)
  24. TACROLIMUS. [Interacting]
     Active Substance: TACROLIMUS
     Dosage: 2.2 MG, DAILY (AFTER 11 DAYS FLUCONAZOLE WITHDRAWAL)

REACTIONS (3)
  - Drug interaction [Recovered/Resolved]
  - Drug level increased [Recovered/Resolved]
  - Drug clearance decreased [Recovered/Resolved]
